FAERS Safety Report 6739736-6 (Version None)
Quarter: 2010Q2

REPORT INFORMATION
  Report Type: 
  Country: None (occurrence: None)
  Receive Date: 20100525
  Receipt Date: 20100520
  Transmission Date: 20101027
  Serious: Yes (Death)
  Sender: FDA-Public Use
  Company Number: BR-ROCHE-704467

PATIENT
  Age: 52 Year
  Sex: Female

DRUGS (3)
  1. DIAZEPAM [Suspect]
     Indication: ANAESTHESIA
     Route: 065
  2. DORMONID [Suspect]
     Indication: ANAESTHESIA
     Route: 065
  3. LIDOCAINE [Suspect]
     Indication: ENDOSCOPY
     Dosage: DRUG: UNSPECIFIED LIDOCAINE.
     Route: 065

REACTIONS (1)
  - CARDIO-RESPIRATORY ARREST [None]
